FAERS Safety Report 13428786 (Version 2)
Quarter: 2018Q1

REPORT INFORMATION
  Report Type: Report from Study
  Country: FI (occurrence: FI)
  Receive Date: 20170411
  Receipt Date: 20180131
  Transmission Date: 20180508
  Serious: Yes (Other)
  Sender: FDA-Public Use
  Company Number: FI-MYLANLABS-2017M1021718

PATIENT
  Age: 52 Year
  Sex: Male

DRUGS (4)
  1. LEVOZIN [Concomitant]
     Indication: PRODUCT USED FOR UNKNOWN INDICATION
     Dosage: 100 MG, UNK
  2. QUETIAPINE. [Concomitant]
     Active Substance: QUETIAPINE
     Indication: PRODUCT USED FOR UNKNOWN INDICATION
     Dosage: 300 MG, UNK
  3. LEPONEX [Suspect]
     Active Substance: CLOZAPINE
     Dosage: 600 MG, QD
  4. LEPONEX [Suspect]
     Active Substance: CLOZAPINE
     Indication: SCHIZOAFFECTIVE DISORDER
     Dosage: UNK, QD

REACTIONS (9)
  - Mania [Unknown]
  - Constipation [Not Recovered/Not Resolved]
  - Schizophrenia [Unknown]
  - General physical health deterioration [Not Recovered/Not Resolved]
  - Parkinsonian gait [Not Recovered/Not Resolved]
  - Posture abnormal [Not Recovered/Not Resolved]
  - Off label use [Unknown]
  - Hypokinesia [Not Recovered/Not Resolved]
  - Fall [Not Recovered/Not Resolved]
